FAERS Safety Report 20771816 (Version 1)
Quarter: 2022Q2

REPORT INFORMATION
  Report Type: Spontaneous
  Country: US (occurrence: US)
  Receive Date: 20220430
  Receipt Date: 20220430
  Transmission Date: 20220721
  Serious: Yes (Other)
  Sender: FDA-Public Use
  Company Number: US-drreddys-LIT/USA/22/0149372

PATIENT
  Age: 24 Year
  Sex: Male

DRUGS (5)
  1. FENTANYL CITRATE [Suspect]
     Active Substance: FENTANYL CITRATE
     Indication: Headache
     Dosage: ON POSTOPERATIVE DAY 3, HE STARTED RECEIVING INCREASING DOSES OF IV FENTANYL 25?50?G, FOLLOWED BY IV
     Route: 042
  2. IBUPROFEN [Suspect]
     Active Substance: IBUPROFEN
     Indication: Headache
     Route: 048
  3. ACETAMINOPHEN [Suspect]
     Active Substance: ACETAMINOPHEN
     Indication: Headache
     Route: 048
  4. GABAPENTIN [Suspect]
     Active Substance: GABAPENTIN
     Indication: Headache
     Route: 048
  5. HYDROMORPHONE [Suspect]
     Active Substance: HYDROMORPHONE
     Indication: Headache
     Dosage: ON POSTOPERATIVE DAY 3, HE STARTED RECEIVING INCREASING DOSES OF IV FENTANYL 25?50?G, FOLLOWED BY IV
     Route: 042

REACTIONS (1)
  - Drug ineffective [Unknown]
